FAERS Safety Report 4441005-4 (Version None)
Quarter: 2004Q3

REPORT INFORMATION
  Report Type: 
  Country: None (occurrence: None)
  Receive Date: 20040901
  Receipt Date: 20040901
  Transmission Date: 20050211
  Serious: Yes (Other)
  Sender: FDA-Public Use
  Company Number: None

PATIENT
  Age: 35 Year
  Sex: Male
  Weight: 78.9259 kg

DRUGS (2)
  1. OMNICEF [Suspect]
     Indication: PNEUMONIA
     Dosage: 300 MG TWICE DAILY
     Dates: start: 20040425
  2. OMNICEF [Suspect]
     Indication: RESPIRATORY TRACT CONGESTION
     Dosage: 300 MG TWICE DAILY
     Dates: start: 20040425

REACTIONS (5)
  - EATING DISORDER [None]
  - ORAL CANDIDIASIS [None]
  - PAIN IN JAW [None]
  - TONGUE BLISTERING [None]
  - WEIGHT DECREASED [None]
